FAERS Safety Report 5046229-3 (Version None)
Quarter: 2006Q3

REPORT INFORMATION
  Report Type: 
  Country: None (occurrence: None)
  Receive Date: 20060707
  Receipt Date: 20060707
  Transmission Date: 20061208
  Serious: Yes (Life-Threatening, Hospitalization)
  Sender: FDA-Public Use
  Company Number: None

PATIENT
  Age: 58 Year
  Sex: Male

DRUGS (6)
  1. ALEMTUZUMAB INJECTION   30MG [Suspect]
     Indication: CHRONIC LYMPHOCYTIC LEUKAEMIA
     Dosage: 30MG  MON-WED-FRI  SQ
     Route: 058
     Dates: start: 20060310, end: 20060412
  2. MORPHINE [Concomitant]
  3. AZITHROMYCIN [Concomitant]
  4. AUGMENTIN '125' [Concomitant]
  5. VALGANCICLOVIR HCL [Concomitant]
  6. DOCUSATE [Concomitant]

REACTIONS (1)
  - PANCYTOPENIA [None]
